FAERS Safety Report 21778883 (Version 5)
Quarter: 2023Q1

REPORT INFORMATION
  Report Type: Report from Study
  Country: US (occurrence: US)
  Receive Date: 20221226
  Receipt Date: 20230329
  Transmission Date: 20230418
  Serious: No
  Sender: FDA-Public Use
  Company Number: US-002147023-NVSC2022US297907

PATIENT
  Sex: Female

DRUGS (1)
  1. KISQALI [Suspect]
     Active Substance: RIBOCICLIB
     Indication: Product used for unknown indication
     Dosage: UNK
     Route: 048

REACTIONS (9)
  - Skin exfoliation [Unknown]
  - Pain in extremity [Unknown]
  - Tumour marker increased [Unknown]
  - Memory impairment [Unknown]
  - Balance disorder [Unknown]
  - Lung disorder [Unknown]
  - Rash [Unknown]
  - Nasopharyngitis [Unknown]
  - Cough [Unknown]
